FAERS Safety Report 21463199 (Version 1)
Quarter: 2022Q4

REPORT INFORMATION
  Report Type: Spontaneous
  Country: US (occurrence: US)
  Receive Date: 20221017
  Receipt Date: 20221017
  Transmission Date: 20230112
  Serious: Yes (Death, Other)
  Sender: FDA-Public Use
  Company Number: US-IPCA LABORATORIES LIMITED-IPC-2022-US-001694

PATIENT

DRUGS (1)
  1. METFORMIN [Suspect]
     Active Substance: METFORMIN HYDROCHLORIDE
     Indication: Product used for unknown indication
     Dosage: UNK
     Route: 048

REACTIONS (8)
  - Lactic acidosis [Fatal]
  - Shock [Fatal]
  - Mental status changes [Fatal]
  - Anion gap increased [Fatal]
  - Pulse absent [Fatal]
  - Drug level increased [Fatal]
  - Toxicity to various agents [Fatal]
  - Overdose [Fatal]
